FAERS Safety Report 6515756-1 (Version None)
Quarter: 2009Q4

REPORT INFORMATION
  Report Type: 
  Country: None (occurrence: None)
  Receive Date: 20091223
  Receipt Date: 20091216
  Transmission Date: 20100525
  Serious: Yes (Hospitalization, Other)
  Sender: FDA-Public Use
  Company Number: US-BAYER-200942556NA

PATIENT
  Age: 36 Year
  Sex: Female
  Weight: 91 kg

DRUGS (4)
  1. YASMIN [Suspect]
     Indication: DRUG USE FOR UNKNOWN INDICATION
     Dates: start: 20040601, end: 20080121
  2. PROZAC [Concomitant]
  3. EFFEXOR [Concomitant]
  4. ASPIRIN [Concomitant]

REACTIONS (9)
  - BACK PAIN [None]
  - DEEP VEIN THROMBOSIS [None]
  - DIZZINESS [None]
  - OEDEMA PERIPHERAL [None]
  - OVARIAN CYST RUPTURED [None]
  - PHLEBITIS SUPERFICIAL [None]
  - POST THROMBOTIC SYNDROME [None]
  - PULMONARY EMBOLISM [None]
  - SURGERY [None]
